FAERS Safety Report 24221560 (Version 4)
Quarter: 2024Q3

REPORT INFORMATION
  Report Type: Spontaneous
  Country: US (occurrence: US)
  Receive Date: 20240819
  Receipt Date: 20240923
  Transmission Date: 20241016
  Serious: Yes (Other)
  Sender: ROCHE
  Company Number: US-ROCHE-10000051731

PATIENT
  Sex: Female
  Weight: 63.5 kg

DRUGS (3)
  1. KADCYLA [Suspect]
     Active Substance: ADO-TRASTUZUMAB EMTANSINE
     Indication: HER2 positive breast cancer
     Route: 042
     Dates: start: 20240612
  2. HERCEPTIN [Suspect]
     Active Substance: TRASTUZUMAB
     Indication: HER2 positive breast cancer
     Route: 065
     Dates: start: 202312, end: 20240401
  3. PERJETA [Suspect]
     Active Substance: PERTUZUMAB
     Indication: HER2 positive breast cancer
     Route: 065
     Dates: start: 202312, end: 20240401

REACTIONS (11)
  - Rash [Unknown]
  - Feeling abnormal [Unknown]
  - Nausea [Unknown]
  - Cough [Unknown]
  - Gait disturbance [Unknown]
  - Cancer cells present [Unknown]
  - Loss of consciousness [Unknown]
  - Hypertension [Unknown]
  - Asthenia [Unknown]
  - Pain [Unknown]
  - Ill-defined disorder [Unknown]
